FAERS Safety Report 5575260-4 (Version None)
Quarter: 2007Q4

REPORT INFORMATION
  Report Type: 
  Country: None (occurrence: None)
  Receive Date: 20071227
  Receipt Date: 20071217
  Transmission Date: 20080405
  Serious: Yes (Other)
  Sender: FDA-Public Use
  Company Number: US-PFIZER INC-2007082486

PATIENT
  Sex: Male
  Weight: 65.909 kg

DRUGS (6)
  1. CHANTIX [Suspect]
     Indication: SMOKING CESSATION THERAPY
     Route: 048
     Dates: start: 20070601, end: 20070801
  2. TRIZIVIR [Concomitant]
     Indication: HIV TEST POSITIVE
     Route: 048
  3. ANDROGEL [Concomitant]
     Route: 048
  4. XANAX [Concomitant]
     Route: 048
  5. SEROSTIM [Concomitant]
     Route: 058
  6. CIALIS [Concomitant]
     Route: 048

REACTIONS (4)
  - AFFECT LABILITY [None]
  - AGGRESSION [None]
  - ANGER [None]
  - IRRITABILITY [None]
